FAERS Safety Report 11057230 (Version 1)
Quarter: 2015Q2

REPORT INFORMATION
  Report Type: Spontaneous
  Country: US (occurrence: US)
  Receive Date: 20150422
  Receipt Date: 20150422
  Transmission Date: 20150821
  Serious: Yes (Hospitalization, Other)
  Sender: FDA-Public Use
  Company Number: US-MYLANLABS-2015M1012421

PATIENT

DRUGS (1)
  1. ENLON-PLUS [Suspect]
     Active Substance: ATROPINE SULFATE\EDROPHONIUM CHLORIDE
     Indication: NEUROMUSCULAR BLOCKADE REVERSAL
     Dosage: 50 MG, ONCE
     Route: 042
     Dates: start: 20150313, end: 20150313

REACTIONS (3)
  - Ventricular tachycardia [Recovered/Resolved]
  - Cardiac arrest [Recovered/Resolved]
  - Drug ineffective [Recovered/Resolved]

NARRATIVE: CASE EVENT DATE: 20150313
